FAERS Safety Report 26150138 (Version 1)
Quarter: 2025Q4

REPORT INFORMATION
  Report Type: Other
  Country: GB (occurrence: GB)
  Receive Date: 20251212
  Receipt Date: 20251212
  Transmission Date: 20260118
  Serious: Yes (Death, Other)
  Sender: MACLEODS
  Company Number: None

PATIENT

DRUGS (11)
  1. RIVAROXABAN [Suspect]
     Active Substance: RIVAROXABAN
     Indication: Atrial fibrillation
     Dosage: TAKE ONE DAILY (EPS)
     Route: 065
  2. MORPHINE SULFATE [Concomitant]
     Active Substance: MORPHINE SULFATE
     Indication: Product used for unknown indication
     Dosage: ONE CAPSULE TO BE TAKEN EVERY 12 HOURS INCREASING UPTO 20MG TWICE A DAY
     Route: 065
  3. MORPHINE SULFATE [Concomitant]
     Active Substance: MORPHINE SULFATE
     Route: 065
  4. ETORICOXIB [Concomitant]
     Active Substance: ETORICOXIB
     Indication: Back pain
     Dosage: INCREASE TO MAX 3 DAILY IF REQUIRED.
     Route: 065
     Dates: start: 20250403
  5. OMEPRAZOLE [Concomitant]
     Active Substance: OMEPRAZOLE
     Indication: Product used for unknown indication
     Route: 065
  6. MORPHINE [Concomitant]
     Active Substance: MORPHINE
     Indication: Product used for unknown indication
     Dosage: 2.5 ML TO 5 ML 1-2 HOURLY IF REQUIRED
     Route: 065
  7. GLYCERIN [Concomitant]
     Active Substance: GLYCERIN
     Indication: Product used for unknown indication
     Dosage: 1 OR 2 TO BE INSERTED INTO THE RECTUM DAILY WHEN REQUIRED
     Route: 065
     Dates: start: 20250403
  8. COCODAMOL [Concomitant]
     Active Substance: ACETAMINOPHEN\CODEINE PHOSPHATE
     Indication: Pathological fracture
     Dosage: 1 OR 2 TABLETS EVERY 4 TO 6 HOURS WHEN REQUIRED. MAXIMUM 8 TABLETS PER DAY
     Route: 065
     Dates: start: 20250430
  9. GABAPENTIN [Concomitant]
     Active Substance: GABAPENTIN
     Indication: Pathological fracture
     Dosage: ONE DAY 1, TAKE ONE TO BE TAKEN TWICE DAILY DAY 2
     Route: 065
     Dates: start: 20250430
  10. GABAPENTIN [Concomitant]
     Active Substance: GABAPENTIN
     Dosage: TAKE ONE TO BE TAKEN TWICE DAILY DAY 2
     Route: 065
  11. GABAPENTIN [Concomitant]
     Active Substance: GABAPENTIN
     Dosage: TAKE ONE TO BE TAKEN TWICE DAILY DAY 2
     Route: 065

REACTIONS (4)
  - Cerebral haemorrhage [Fatal]
  - Loss of consciousness [Not Recovered/Not Resolved]
  - Circulatory collapse [Not Recovered/Not Resolved]
  - Headache [Not Recovered/Not Resolved]

NARRATIVE: CASE EVENT DATE: 20250525
